FAERS Safety Report 4970498-9 (Version None)
Quarter: 2006Q2

REPORT INFORMATION
  Report Type: 
  Country: None (occurrence: None)
  Receive Date: 20060406
  Receipt Date: 20060321
  Transmission Date: 20061013
  Serious: Yes (Life-Threatening, Hospitalization)
  Sender: FDA-Public Use
  Company Number: NL200603005898

PATIENT
  Age: 40 Year
  Sex: Female
  Weight: 92 kg

DRUGS (3)
  1. PROZAC [Suspect]
     Indication: DEPRESSION
     Dosage: 20 MG, DAILY (1/D)
     Dates: start: 20001201, end: 20040601
  2. VENTOLINE ROTADISK (SALBUTAMOL SULFATE) INHALER [Concomitant]
  3. PREDNISON GALEPHARM (PREDNISONE) [Concomitant]

REACTIONS (8)
  - DIABETES MELLITUS [None]
  - GALACTORRHOEA [None]
  - HAEMATOMA [None]
  - HYPERGLYCAEMIA [None]
  - HYPERTENSION [None]
  - HYPOGLYCAEMIA [None]
  - LIBIDO DECREASED [None]
  - PYREXIA [None]
